FAERS Safety Report 16495034 (Version 1)
Quarter: 2019Q2

REPORT INFORMATION
  Report Type: Report from Study
  Country: IN (occurrence: IN)
  Receive Date: 20190628
  Receipt Date: 20190628
  Transmission Date: 20190711
  Serious: Yes (Hospitalization, Other)
  Sender: FDA-Public Use
  Company Number: IN-MYLANLABS-2019M1059375

PATIENT
  Age: 37 Year

DRUGS (3)
  1. LAMIVUDINE. [Suspect]
     Active Substance: LAMIVUDINE
     Indication: HIV INFECTION
     Route: 065
  2. ATAZANAVIR. [Interacting]
     Active Substance: ATAZANAVIR
     Indication: HIV INFECTION
     Route: 065
  3. TENOFOVIR [Suspect]
     Active Substance: TENOFOVIR
     Indication: HIV INFECTION
     Route: 065

REACTIONS (3)
  - CSF HIV escape syndrome [Recovered/Resolved]
  - Labelled drug-drug interaction medication error [Recovered/Resolved]
  - Pathogen resistance [Unknown]
